FAERS Safety Report 19035287 (Version 3)
Quarter: 2022Q1

REPORT INFORMATION
  Report Type: Other
  Country: US (occurrence: US)
  Receive Date: 20210320
  Receipt Date: 20220121
  Transmission Date: 20220423
  Serious: Yes (Other)
  Sender: FDA-Public Use
  Company Number: US-ACORDA-ACO_168097_2021

PATIENT
  Sex: Female

DRUGS (2)
  1. INBRIJA [Suspect]
     Active Substance: LEVODOPA
     Indication: Parkinson^s disease
     Dosage: 84 MILLIGRAM, PRN (NOT TO EXCEED 5 DOSES PER DAY)
     Dates: start: 20210224
  2. INBRIJA [Suspect]
     Active Substance: LEVODOPA
     Indication: On and off phenomenon

REACTIONS (6)
  - Thrombosis [Not Recovered/Not Resolved]
  - Dysphonia [Unknown]
  - Device use issue [Unknown]
  - Drug effect less than expected [Unknown]
  - Parkinson^s disease [Not Recovered/Not Resolved]
  - Cough [Recovered/Resolved]
